FAERS Safety Report 10158579 (Version 1)
Quarter: 2014Q2

REPORT INFORMATION
  Report Type: Spontaneous
  Country: IT (occurrence: IT)
  Receive Date: 20140508
  Receipt Date: 20140508
  Transmission Date: 20141212
  Serious: Yes (Life-Threatening)
  Sender: FDA-Public Use
  Company Number: IT-ROCHE-1396270

PATIENT
  Age: 77 Year
  Sex: Female
  Weight: 52 kg

DRUGS (2)
  1. AVASTIN [Suspect]
     Indication: ADENOCARCINOMA OF COLON
     Route: 042
     Dates: start: 20130611, end: 20140127
  2. CAMPTO [Concomitant]
     Route: 042
     Dates: start: 20131209, end: 20140310

REACTIONS (3)
  - Constipation [Recovering/Resolving]
  - Faeces discoloured [Recovering/Resolving]
  - Gastroduodenal haemorrhage [Recovering/Resolving]
